FAERS Safety Report 13550760 (Version 1)
Quarter: 2017Q2

REPORT INFORMATION
  Report Type: Spontaneous
  Country: US (occurrence: US)
  Receive Date: 20170516
  Receipt Date: 20170516
  Transmission Date: 20170830
  Serious: Yes (Life-Threatening, Hospitalization)
  Sender: FDA-Public Use
  Company Number: US-SA-2017SA086779

PATIENT
  Age: 19 Year
  Sex: Female

DRUGS (1)
  1. EPINEPHRINE. [Suspect]
     Active Substance: EPINEPHRINE
     Dosage: DOSE:0.3 MILLIGRAM(S)/LITRE
     Route: 014

REACTIONS (6)
  - Tachycardia [Recovered/Resolved]
  - Acute pulmonary oedema [Recovering/Resolving]
  - Tachypnoea [Recovering/Resolving]
  - Oxygen saturation decreased [Recovering/Resolving]
  - Rales [Recovering/Resolving]
  - Hypertension [Recovered/Resolved]
